FAERS Safety Report 8598464-5 (Version None)
Quarter: 2012Q3

REPORT INFORMATION
  Report Type: 
  Country: None (occurrence: None)
  Receive Date: 20120816
  Receipt Date: 20120809
  Transmission Date: 20120928
  Serious: Yes (Hospitalization, Other)
  Sender: FDA-Public Use
  Company Number: DE-ROCHE-1076775

PATIENT
  Age: 90 Year
  Sex: Female

DRUGS (3)
  1. METHIMAZOLE [Concomitant]
  2. DEKRISTOL [Concomitant]
  3. LUCENTIS [Suspect]
     Indication: MACULAR DEGENERATION
     Route: 050
     Dates: start: 20120516

REACTIONS (2)
  - LIVER INJURY [None]
  - URINARY TRACT INFECTION [None]
